FAERS Safety Report 8378796-6 (Version None)
Quarter: 2012Q2

REPORT INFORMATION
  Report Type: 
  Country: None (occurrence: None)
  Receive Date: 20120523
  Receipt Date: 20120517
  Transmission Date: 20120825
  Serious: Yes (Hospitalization)
  Sender: FDA-Public Use
  Company Number: AU-AMGEN-AUSSP2012031431

PATIENT
  Age: 72 Year
  Sex: Female
  Weight: 92 kg

DRUGS (3)
  1. PROLIA [Suspect]
     Indication: PRODUCT USED FOR UNKNOWN INDICATION
     Dosage: 60 MG, ONE TIME DOSE
     Route: 058
     Dates: start: 20120213
  2. CARBAMAZEPINE [Concomitant]
  3. EXEMESTANE [Suspect]

REACTIONS (6)
  - DECREASED APPETITE [None]
  - NAUSEA [None]
  - DIARRHOEA [None]
  - HYPOCALCAEMIA [None]
  - HYPOPHOSPHATAEMIA [None]
  - HYPOKALAEMIA [None]
